FAERS Safety Report 6864117-4 (Version None)
Quarter: 2010Q3

REPORT INFORMATION
  Report Type: 
  Country: None (occurrence: None)
  Receive Date: 20100720
  Receipt Date: 20100712
  Transmission Date: 20110219
  Serious: Yes (Death)
  Sender: FDA-Public Use
  Company Number: DSA_43513_2010

PATIENT
  Sex: Female

DRUGS (1)
  1. XENAZINE [Suspect]
     Indication: TARDIVE DYSKINESIA
     Dosage: 12.5 MG TID ORAL, 12.5 MG BID ORAL
     Route: 048
     Dates: start: 20090702

REACTIONS (3)
  - CARDIAC ARREST [None]
  - NERVOUSNESS [None]
  - TREMOR [None]
